FAERS Safety Report 6201277-2 (Version None)
Quarter: 2009Q2

REPORT INFORMATION
  Report Type: 
  Country: None (occurrence: None)
  Receive Date: 20090526
  Receipt Date: 20090514
  Transmission Date: 20091009
  Serious: Yes (Other)
  Sender: FDA-Public Use
  Company Number: PHHY2009CN18878

PATIENT
  Age: 61 Year
  Sex: Female

DRUGS (3)
  1. MIACALCIN [Suspect]
     Indication: OSTEOPOROSIS
     Dosage: UNK
     Dates: start: 20090510, end: 20090510
  2. CALTRATE +D [Suspect]
     Dosage: UNK
  3. VITAMIN D3 [Concomitant]

REACTIONS (7)
  - ARTHRALGIA [None]
  - DRUG HYPERSENSITIVITY [None]
  - ERYTHEMA [None]
  - INSOMNIA [None]
  - JOINT SWELLING [None]
  - NAUSEA [None]
  - PRURITUS [None]
